FAERS Safety Report 4631387-2 (Version None)
Quarter: 2005Q2

REPORT INFORMATION
  Report Type: 
  Country: None (occurrence: None)
  Receive Date: 20050407
  Receipt Date: 20050324
  Transmission Date: 20051028
  Serious: Yes (Death, Hospitalization, Other)
  Sender: FDA-Public Use
  Company Number: USA-2004-0015384

PATIENT
  Age: 55 Year
  Sex: Female

DRUGS (24)
  1. OXYCONTIN [Suspect]
     Indication: PAIN
  2. LORATAB (PARACETAMOL,  HYDROCODONE BITARTRATE) [Suspect]
     Indication: PAIN
  3. DARVOCET [Suspect]
     Indication: PAIN
  4. LORCET-HD [Suspect]
     Indication: PAIN
  5. PROMETHAZINE [Suspect]
  6. PROPOXYPHENE (DEXTROPROPOXYPHENE) [Suspect]
  7. DIPHENHYDRAMINE HCL [Suspect]
  8. BENZODIAZEPINE DERIVATIVES [Concomitant]
  9. VISTARIL [Concomitant]
  10. PARAFON FORTE (CHLORZOXAZONE) [Concomitant]
  11. RESTORIL [Concomitant]
  12. COUMADIN [Concomitant]
  13. PAXIL [Concomitant]
  14. MACROBID [Concomitant]
  15. CALCIUM GLUCONATE [Concomitant]
  16. MAGNESIUM [Concomitant]
  17. GINSEG (GINSENG) [Concomitant]
  18. VITAMIN E [Concomitant]
  19. PREVACID (LANSOPRAOZLE) [Concomitant]
  20. NEURONTIN [Concomitant]
  21. XANAX [Concomitant]
  22. AMBIEN [Concomitant]
  23. POTASSIUM ACETATE [Concomitant]
  24. LASIX [Concomitant]

REACTIONS (44)
  - ACCIDENTAL OVERDOSE [None]
  - ALANINE AMINOTRANSFERASE INCREASED [None]
  - ANXIETY [None]
  - ARTHRALGIA [None]
  - ASPARTATE AMINOTRANSFERASE INCREASED [None]
  - BACK PAIN [None]
  - BEDRIDDEN [None]
  - BLOOD ALKALINE PHOSPHATASE INCREASED [None]
  - BURN INFECTION [None]
  - CONDITION AGGRAVATED [None]
  - DEPRESSION [None]
  - DISORIENTATION [None]
  - DISTURBANCE IN ATTENTION [None]
  - DRUG ABUSER [None]
  - DRUG DEPENDENCE [None]
  - DYSPEPSIA [None]
  - DYSPNOEA [None]
  - HAEMARTHROSIS [None]
  - HAEMATEMESIS [None]
  - HALLUCINATION [None]
  - HYPERLIPIDAEMIA [None]
  - HYPOKALAEMIA [None]
  - HYPOPROTHROMBINAEMIA [None]
  - INCOHERENT [None]
  - INSOMNIA [None]
  - INTERNATIONAL NORMALISED RATIO INCREASED [None]
  - LIVER FUNCTION TEST ABNORMAL [None]
  - MEDICATION ERROR [None]
  - MULTIPLE DRUG OVERDOSE [None]
  - NAUSEA [None]
  - OEDEMA PERIPHERAL [None]
  - PAIN [None]
  - PROTHROMBIN TIME PROLONGED [None]
  - PROTHROMBIN TIME SHORTENED [None]
  - RASH [None]
  - STARING [None]
  - STRESS INCONTINENCE [None]
  - SYNCOPE [None]
  - THERMAL BURN [None]
  - URINARY TRACT INFECTION [None]
  - VARICOPHLEBITIS [None]
  - VARICOSE VEIN [None]
  - VIRAL INFECTION [None]
  - WEIGHT DECREASED [None]
